FAERS Safety Report 17156651 (Version 1)
Quarter: 2019Q4

REPORT INFORMATION
  Report Type: Spontaneous
  Country: SE (occurrence: SE)
  Receive Date: 20191216
  Receipt Date: 20191216
  Transmission Date: 20200122
  Serious: Yes (Hospitalization)
  Sender: FDA-Public Use
  Company Number: SE-TEVA-2019-SE-1151298

PATIENT
  Age: 25 Year
  Sex: Female

DRUGS (7)
  1. LAMOTRIGINE. [Suspect]
     Active Substance: LAMOTRIGINE
     Dosage: ^3-4 LAMOTRIGIN 100MG^
     Route: 048
     Dates: start: 20190714, end: 20190714
  2. PROPAVAN [Suspect]
     Active Substance: PROPIOMAZINE
     Dosage: 3-4
     Route: 048
     Dates: start: 20190714, end: 20190714
  3. LERGIGAN (PROMETHAZINE HYDROCHLORIDE) [Suspect]
     Active Substance: PROMETHAZINE HYDROCHLORIDE
     Dosage: 375 MG
     Route: 048
     Dates: start: 20190714, end: 20190714
  4. LITHIUM. [Suspect]
     Active Substance: LITHIUM
     Dosage: 7-8X42 MG
     Route: 048
     Dates: start: 20190714, end: 20190714
  5. ABILIFY [Suspect]
     Active Substance: ARIPIPRAZOLE
     Dosage: 75 MG
     Route: 048
     Dates: start: 20190714, end: 20190714
  6. OMEPRAZOLE. [Suspect]
     Active Substance: OMEPRAZOLE
     Dosage: ^REACH^
     Route: 048
     Dates: start: 20190714, end: 20190714
  7. IMOVANE [Suspect]
     Active Substance: ZOPICLONE
     Dosage: 3-4
     Route: 048
     Dates: start: 20190714, end: 20190714

REACTIONS (3)
  - Sinus tachycardia [Unknown]
  - Intentional self-injury [Unknown]
  - Intentional overdose [Unknown]

NARRATIVE: CASE EVENT DATE: 20190714
